FAERS Safety Report 12514739 (Version 1)
Quarter: 2016Q2

REPORT INFORMATION
  Report Type: Spontaneous
  Country: US (occurrence: None)
  Receive Date: 20160629
  Receipt Date: 20160629
  Transmission Date: 20160815
  Serious: No
  Sender: FDA-Public Use
  Company Number: None

PATIENT
  Age: 67 Year
  Sex: Male

DRUGS (12)
  1. SIMVASTATIN. [Concomitant]
     Active Substance: SIMVASTATIN
  2. OMPEPRAZOLE [Concomitant]
  3. HALOPERIDOL. [Concomitant]
     Active Substance: HALOPERIDOL
  4. APAP [Concomitant]
     Active Substance: ACETAMINOPHEN
  5. SERTRALINE [Concomitant]
     Active Substance: SERTRALINE HYDROCHLORIDE
  6. MIRALAX [Concomitant]
     Active Substance: POLYETHYLENE GLYCOL 3350
  7. L-CARNITINE [Concomitant]
     Active Substance: LEVOCARNITINE
  8. BENZTROPINE [Concomitant]
     Active Substance: BENZTROPINE
  9. DIVALPROEX ER [Concomitant]
     Active Substance: DIVALPROEX SODIUM
  10. DOCUSATION [Concomitant]
  11. CLOZAPINE. [Concomitant]
     Active Substance: CLOZAPINE
  12. TAMSULOSIN [Suspect]
     Active Substance: TAMSULOSIN
     Route: 048

REACTIONS (3)
  - Dizziness [None]
  - Somnolence [None]
  - Hypotension [None]

NARRATIVE: CASE EVENT DATE: 20150529
